FAERS Safety Report 9380134 (Version 1)
Quarter: 2013Q3

REPORT INFORMATION
  Report Type: Spontaneous
  Country: US (occurrence: None)
  Receive Date: 20130701
  Receipt Date: 20130701
  Transmission Date: 20140515
  Serious: Yes (Other)
  Sender: FDA-Public Use
  Company Number: None

PATIENT
  Age: 61 Year
  Sex: Male
  Weight: 73.4 kg

DRUGS (1)
  1. TRAMADOL HYDROCHLORIDE [Suspect]
     Route: 048

REACTIONS (11)
  - Unresponsive to stimuli [None]
  - Blood glucose increased [None]
  - Depressed level of consciousness [None]
  - Aphasia [None]
  - Heart rate increased [None]
  - Mydriasis [None]
  - Cerebrovascular accident [None]
  - Vomiting [None]
  - Convulsion [None]
  - Convulsive threshold lowered [None]
  - Medication error [None]
